FAERS Safety Report 9097594 (Version 1)
Quarter: 2013Q1

REPORT INFORMATION
  Report Type: Spontaneous
  Country: US (occurrence: US)
  Receive Date: 20130212
  Receipt Date: 20130212
  Transmission Date: 20140127
  Serious: Yes (Death, Hospitalization, Other)
  Sender: FDA-Public Use
  Company Number: US-ROCHE-1187534

PATIENT
  Age: 16 Year
  Sex: Female

DRUGS (2)
  1. ROCEPHIN [Suspect]
     Indication: SINUSITIS
     Route: 065
     Dates: start: 20120809
  2. ZITHROMAX [Concomitant]
     Route: 065
     Dates: start: 20120809

REACTIONS (6)
  - Status epilepticus [Fatal]
  - Pyrexia [Unknown]
  - Rash [Unknown]
  - Lethargy [Unknown]
  - Convulsion [Unknown]
  - Decreased appetite [Unknown]
